FAERS Safety Report 7589440-X (Version None)
Quarter: 2011Q2

REPORT INFORMATION
  Report Type: 
  Country: None (occurrence: None)
  Receive Date: 20110627
  Receipt Date: 20110613
  Transmission Date: 20111010
  Serious: Yes (Hospitalization)
  Sender: FDA-Public Use
  Company Number: DSJ-2011-07123

PATIENT
  Age: 80 Year
  Sex: Female
  Weight: 40 kg

DRUGS (5)
  1. MUCOSTA (REBAMIPIDE) (TABLET) (REBAMIPIDE) [Suspect]
     Indication: GASTRITIS
     Dosage: 300 MG (100 MG, 3 IN 1 D), PER ORAL
     Route: 048
     Dates: start: 20000608, end: 20110408
  2. OLMESARTAN MEDOXOMIL [Suspect]
     Indication: HYPERTENSION
     Dosage: 40 MG (40 MG, 1 IN 1 D), PER ORAL
     Route: 048
     Dates: start: 20091127, end: 20110408
  3. PERSANTIN (DIPYRIDAMOLE) (TABLET) (DIPYRIDAMOLE) [Suspect]
     Indication: GLOMERULONEPHRITIS CHRONIC
     Dosage: 150 MG (50 MG, 3 IN 1 D), PER ORAL
     Route: 048
     Dates: start: 20000608, end: 20110408
  4. FERROMIA (FERROUS CITRATE) (TABLET) (FERROUS CITRATE) [Concomitant]
  5. LIPITOR [Suspect]
     Indication: HYPERCHOLESTEROLAEMIA
     Dosage: 20 MG (10 MG, 2 IN 1 D), PER ORAL
     Route: 048
     Dates: start: 20090925, end: 20110408

REACTIONS (1)
  - THROMBOCYTOPENIA [None]
